FAERS Safety Report 12225861 (Version 1)
Quarter: 2016Q1

REPORT INFORMATION
  Report Type: Spontaneous
  Country: US (occurrence: US)
  Receive Date: 20160331
  Receipt Date: 20160331
  Transmission Date: 20160526
  Serious: Yes (Hospitalization, Disabling, Other)
  Sender: FDA-Public Use
  Company Number: US-ENDO PHARMACEUTICALS INC.-2015-004452

PATIENT
  Age: 61 Year
  Sex: Male
  Weight: 81.72 kg

DRUGS (3)
  1. TESTIM [Suspect]
     Active Substance: TESTOSTERONE
     Indication: ANDROGEN REPLACEMENT THERAPY
     Route: 062
     Dates: start: 200609, end: 201209
  2. TESTOPEL [Suspect]
     Active Substance: TESTOSTERONE
     Indication: ANDROGEN REPLACEMENT THERAPY
     Route: 058
     Dates: start: 201210
  3. ANDROGEL [Suspect]
     Active Substance: TESTOSTERONE
     Indication: ANDROGEN REPLACEMENT THERAPY
     Route: 065
     Dates: start: 200206, end: 200211

REACTIONS (10)
  - Syncope [Unknown]
  - Angina unstable [Not Recovered/Not Resolved]
  - Arteriosclerosis coronary artery [Unknown]
  - Small intestinal obstruction [Unknown]
  - Coronary artery disease [Not Recovered/Not Resolved]
  - Enteritis [Unknown]
  - Hyperlipidaemia [Unknown]
  - Hypertension [Unknown]
  - Carotid artery stenosis [Unknown]
  - Acute myocardial infarction [Not Recovered/Not Resolved]

NARRATIVE: CASE EVENT DATE: 20091122
